FAERS Safety Report 16055240 (Version 16)
Quarter: 2024Q4

REPORT INFORMATION
  Report Type: Report from Study
  Country: CA (occurrence: CA)
  Receive Date: 20190311
  Receipt Date: 20241206
  Transmission Date: 20250115
  Serious: No
  Sender: ROCHE
  Company Number: CA-ROCHE-2278210

PATIENT
  Age: 52 Year
  Sex: Female

DRUGS (9)
  1. OCREVUS [Suspect]
     Active Substance: OCRELIZUMAB
     Indication: Primary progressive multiple sclerosis
     Dosage: 300 MG AT DAY 0 AND 14, THEN 600 MG EVERY 6 MONTH
     Route: 042
     Dates: start: 20190215
  2. OCREVUS [Suspect]
     Active Substance: OCRELIZUMAB
     Route: 042
  3. ADVIL [Concomitant]
     Active Substance: IBUPROFEN
     Indication: Back pain
     Dates: start: 20190302
  4. FENTANYL [Concomitant]
     Active Substance: FENTANYL
     Indication: Ankylosing spondylitis
     Dosage: A VERY LOW DOSE
  5. PRAMIPEXOLE [Concomitant]
     Active Substance: PRAMIPEXOLE\PRAMIPEXOLE DIHYDROCHLORIDE
     Indication: Restless legs syndrome
  6. ZOPICLONE [Concomitant]
     Active Substance: ZOPICLONE
     Dosage: OCCASIONALLY SHE TAKES IT
  7. FENTANYL [Concomitant]
     Active Substance: FENTANYL
  8. TRAMADOL [Concomitant]
     Active Substance: TRAMADOL
  9. ROSUVASTATIN [Concomitant]
     Active Substance: ROSUVASTATIN

REACTIONS (11)
  - Influenza [Recovered/Resolved]
  - Back pain [Unknown]
  - Hot flush [Recovered/Resolved]
  - Insomnia [Recovered/Resolved]
  - Musculoskeletal stiffness [Not Recovered/Not Resolved]
  - Blood cholesterol increased [Not Recovered/Not Resolved]
  - Back pain [Not Recovered/Not Resolved]
  - Tooth disorder [Recovering/Resolving]
  - Drug hypersensitivity [Recovered/Resolved]
  - Arthralgia [Unknown]
  - Off label use [Unknown]

NARRATIVE: CASE EVENT DATE: 20190301
